FAERS Safety Report 21665375 (Version 1)
Quarter: 2022Q4

REPORT INFORMATION
  Report Type: Report from Study
  Country: US (occurrence: US)
  Receive Date: 20221201
  Receipt Date: 20221201
  Transmission Date: 20230112
  Serious: No
  Sender: FDA-Public Use
  Company Number: US-ABBVIE-4183737

PATIENT
  Sex: Female

DRUGS (2)
  1. HUMIRA [Suspect]
     Active Substance: ADALIMUMAB
     Indication: Uveitis
     Route: 058
     Dates: start: 20221028
  2. METHOTREXATE [Concomitant]
     Active Substance: METHOTREXATE
     Indication: Uveitis

REACTIONS (1)
  - Injury associated with device [Recovered/Resolved]
